FAERS Safety Report 4510353-1 (Version None)
Quarter: 2004Q4

REPORT INFORMATION
  Report Type: 
  Country: None (occurrence: None)
  Receive Date: 20041124
  Receipt Date: 20041001
  Transmission Date: 20050328
  Serious: Yes (Hospitalization)
  Sender: FDA-Public Use
  Company Number: DE-MERCK-0410DEU00065

PATIENT
  Age: 73 Year
  Sex: Male

DRUGS (2)
  1. VIOXX [Suspect]
     Indication: PAIN
     Route: 048
     Dates: start: 20040226, end: 20041001
  2. VIOXX [Suspect]
     Indication: PLEURISY
     Route: 048
     Dates: start: 20040226, end: 20041001

REACTIONS (3)
  - FACIAL PARESIS [None]
  - PLEURAL MESOTHELIOMA [None]
  - TRIGEMINAL NERVE DISORDER [None]
